FAERS Safety Report 8766726 (Version 1)
Quarter: 2012Q4

REPORT INFORMATION
  Report Type: 
  Country: US (occurrence: US)
  Receive Date: 20120904
  Receipt Date: 20120904
  Transmission Date: 20130627
  Serious: Yes (Other)
  Sender: FDA-Public Use
  Company Number: US-SANOFI-AVENTIS-2012SA061413

PATIENT
  Age: 68 Year
  Sex: Male

DRUGS (2)
  1. PLAVIX [Suspect]
     Route: 048
     Dates: start: 201111
  2. ASPIRIN [Suspect]
     Route: 065

REACTIONS (2)
  - Gastrointestinal perforation [Unknown]
  - Gastrointestinal haemorrhage [Unknown]
